FAERS Safety Report 7707656 (Version 2)
Quarter: 2012Q4

REPORT INFORMATION
  Report Type: 
  Country: US (occurrence: US)
  Receive Date: 20101214
  Receipt Date: 20121108
  Transmission Date: 20130627
  Serious: Yes (Other)
  Sender: FDA-Public Use
  Company Number: US-ASTRAZENECA-2010SE00735

PATIENT
  Age: 69 Year
  Sex: Female
  Weight: 52.2 kg

DRUGS (2)
  1. CRESTOR [Suspect]
     Route: 048
  2. ATACAND [Suspect]
     Indication: LEFT VENTRICULAR FAILURE
     Route: 048
     Dates: start: 20121025

REACTIONS (4)
  - Left ventricular failure [Recovering/Resolving]
  - Increased upper airway secretion [Unknown]
  - Cough [Unknown]
  - Osteoporosis [Unknown]
